FAERS Safety Report 7351200-2 (Version None)
Quarter: 2011Q1

REPORT INFORMATION
  Report Type: 
  Country: None (occurrence: None)
  Receive Date: 20110314
  Receipt Date: 20110304
  Transmission Date: 20110831
  Serious: Yes (Hospitalization)
  Sender: FDA-Public Use
  Company Number: TR-MEDIMMUNE-MEDI-0012811

PATIENT
  Sex: Male

DRUGS (2)
  1. SYNAGIS [Suspect]
     Dosage: 50 MG X 3
     Route: 030
     Dates: start: 20110128, end: 20110224
  2. SYNAGIS [Suspect]
     Indication: NEONATAL RESPIRATORY DISTRESS SYNDROME
     Dosage: 50 MG X 3
     Route: 030
     Dates: start: 20101226, end: 20101226

REACTIONS (3)
  - BRONCHITIS [None]
  - DYSPNOEA [None]
  - COUGH [None]
